FAERS Safety Report 7275359-0 (Version None)
Quarter: 2011Q1

REPORT INFORMATION
  Report Type: 
  Country: None (occurrence: None)
  Receive Date: 20110131
  Receipt Date: 20110114
  Transmission Date: 20110831
  Serious: Yes (Death)
  Sender: FDA-Public Use
  Company Number: 1000018410

PATIENT
  Age: 32 Year
  Sex: Male

DRUGS (5)
  1. ALPRAZOLAM [Suspect]
  2. ESCITALOPRAM [Suspect]
  3. CYCLOBENZAPRINE [Suspect]
  4. ZOLPIDEM [Concomitant]
  5. ETHINYL ESTRADIOL/DESOGESTREL (ETHINYL ESTRADIOL, DESOGESTREL) [Suspect]

REACTIONS (1)
  - DEATH [None]
